FAERS Safety Report 23392398 (Version 1)
Quarter: 2024Q1

REPORT INFORMATION
  Report Type: Spontaneous
  Country: US (occurrence: US)
  Receive Date: 20240111
  Receipt Date: 20240111
  Transmission Date: 20240409
  Serious: No
  Sender: FDA-Public Use
  Company Number: US-REGENERON PHARMACEUTICALS, INC.-2023-050855

PATIENT
  Sex: Female

DRUGS (5)
  1. EYLEA [Suspect]
     Active Substance: AFLIBERCEPT
     Indication: Product used for unknown indication
     Dosage: UNK, Q4W, RIGHT EYE (FORMULATION: UNKNOWN)
     Dates: start: 202204
  2. EYLEA [Suspect]
     Active Substance: AFLIBERCEPT
     Dosage: UNK, Q6W, RIGHT EYE (FORMULATION: UNKNOWN)
  3. EYLEA [Suspect]
     Active Substance: AFLIBERCEPT
     Dosage: UNK, Q8W, RIGHT EYE (FORMULATION: UNKNOWN)
  4. EYLEA [Suspect]
     Active Substance: AFLIBERCEPT
     Dosage: UNK, 10 WEEKS, RIGHT EYE (FORMULATION: UNKNOWN)
  5. EYLEA [Suspect]
     Active Substance: AFLIBERCEPT
     Dosage: UNK, Q8W, RIGHT EYE (FORMULATION: UNKNOWN)

REACTIONS (2)
  - Visual field defect [Unknown]
  - Visual impairment [Unknown]
